FAERS Safety Report 22207628 (Version 1)
Quarter: 2023Q2

REPORT INFORMATION
  Report Type: Spontaneous
  Country: CN (occurrence: CN)
  Receive Date: 20230413
  Receipt Date: 20230413
  Transmission Date: 20230721
  Serious: Yes (Other)
  Sender: FDA-Public Use
  Company Number: CN-FreseniusKabi-FK202304617

PATIENT
  Age: 62 Year
  Sex: Male
  Weight: 55 kg

DRUGS (1)
  1. OMEGAVEN [Suspect]
     Active Substance: FISH OIL
     Indication: Nutritional supplementation
     Route: 041
     Dates: start: 20210324, end: 20210327

REACTIONS (2)
  - Chest discomfort [Recovering/Resolving]
  - Dyspnoea [Recovering/Resolving]

NARRATIVE: CASE EVENT DATE: 20210327
